FAERS Safety Report 6040769-6 (Version None)
Quarter: 2009Q1

REPORT INFORMATION
  Report Type: 
  Country: None (occurrence: None)
  Receive Date: 20090116
  Receipt Date: 20080602
  Transmission Date: 20090719
  Serious: Yes (Hospitalization)
  Sender: FDA-Public Use
  Company Number: US-BRISTOL-MYERS SQUIBB COMPANY-14201321

PATIENT
  Sex: Male

DRUGS (1)
  1. ABILIFY [Suspect]
     Dates: end: 20080101

REACTIONS (4)
  - AGITATION [None]
  - DEMENTIA [None]
  - MANIA [None]
  - TRANSIENT ISCHAEMIC ATTACK [None]
